FAERS Safety Report 23762566 (Version 1)
Quarter: 2024Q2

REPORT INFORMATION
  Report Type: Spontaneous
  Country: US (occurrence: US)
  Receive Date: 20240419
  Receipt Date: 20240419
  Transmission Date: 20240715
  Serious: No
  Sender: FDA-Public Use
  Company Number: US-PFIZER INC-202400089465

PATIENT
  Age: 55 Year
  Sex: Female

DRUGS (3)
  1. METHOTREXATE SODIUM [Suspect]
     Active Substance: METHOTREXATE SODIUM
     Dosage: UNK
  2. HUMIRA [Suspect]
     Active Substance: ADALIMUMAB
     Dosage: UNK
  3. RINVOQ [Suspect]
     Active Substance: UPADACITINIB
     Dosage: UNK

REACTIONS (1)
  - Drug ineffective [Unknown]
